FAERS Safety Report 4414340-3 (Version None)
Quarter: 2004Q2

REPORT INFORMATION
  Report Type: 
  Country: None (occurrence: None)
  Receive Date: 20040630
  Receipt Date: 20040301
  Transmission Date: 20050107
  Serious: No
  Sender: FDA-Public Use
  Company Number: 04P-163-0251725-00

PATIENT
  Age: 62 Year
  Sex: Female
  Weight: 78.4723 kg

DRUGS (12)
  1. HUMIRA [Suspect]
     Indication: RHEUMATOID ARTHRITIS
     Dosage: 40 MG, 1 IN 2 WK, SUBCUTANEOUS
     Route: 058
     Dates: start: 20040127
  2. METHOTREXATE [Concomitant]
  3. FOLIC ACID [Concomitant]
  4. INSULIN LISPRO [Concomitant]
  5. GLIBOMET [Concomitant]
  6. DARVOCET [Concomitant]
  7. IRON [Concomitant]
  8. POTASSIUM [Concomitant]
  9. GORSEMIDE [Concomitant]
  10. ATORVASTATIN CALCIUM [Concomitant]
  11. ALENDRONATE SODIUM [Concomitant]
  12. PREDNISONE TAB [Concomitant]

REACTIONS (3)
  - DIFFICULTY IN WALKING [None]
  - GAIT DISTURBANCE [None]
  - JOINT EFFUSION [None]
